FAERS Safety Report 7298343-X (Version None)
Quarter: 2011Q1

REPORT INFORMATION
  Report Type: 
  Country: None (occurrence: None)
  Receive Date: 20110214
  Receipt Date: 20110214
  Transmission Date: 20110831
  Serious: Yes (Other)
  Sender: FDA-Public Use
  Company Number: None

PATIENT
  Age: 15 Year
  Sex: Female
  Weight: 58.9676 kg

DRUGS (1)
  1. SOLODYN [Suspect]
     Indication: ACNE
     Dosage: ONCE A DAY
     Dates: start: 20110209, end: 20110211

REACTIONS (3)
  - NAUSEA [None]
  - DRUG HYPERSENSITIVITY [None]
  - CHEST DISCOMFORT [None]
